FAERS Safety Report 7059740-0 (Version None)
Quarter: 2010Q4

REPORT INFORMATION
  Report Type: 
  Country: None (occurrence: None)
  Receive Date: 20101025
  Receipt Date: 20101020
  Transmission Date: 20110411
  Serious: Yes (Death, Hospitalization, Other)
  Sender: FDA-Public Use
  Company Number: ES-BAYER-201035325GPV

PATIENT
  Age: 43 Year
  Sex: Male

DRUGS (9)
  1. SORAFENIB [Suspect]
     Indication: HEPATIC NEOPLASM MALIGNANT
     Dosage: TOTAL DAILY DOSE: 800 MG  UNIT DOSE: 200 MG
     Route: 048
     Dates: start: 20100708, end: 20100729
  2. ERLOTINIB HYDROCHLORIDE [Suspect]
     Indication: HEPATIC NEOPLASM MALIGNANT
     Dosage: TOTAL DAILY DOSE: 150 MG
     Route: 048
     Dates: start: 20100708, end: 20100729
  3. METHADONE HCL [Concomitant]
     Indication: PAIN
     Route: 048
     Dates: start: 20100722
  4. FUROSEMIDA [Concomitant]
     Indication: OEDEMA
     Route: 048
  5. FORTECORTIN [Concomitant]
     Route: 048
  6. SINOGAN [Concomitant]
     Route: 048
  7. MAGNESIUM CREAM [Concomitant]
     Indication: CONSTIPATION
     Route: 048
  8. RANITIDINE [Concomitant]
     Indication: CONSTIPATION
     Route: 048
  9. INNOHEP [Concomitant]
     Route: 058
     Dates: start: 20100722

REACTIONS (3)
  - ASCITES [None]
  - GENERAL PHYSICAL HEALTH DETERIORATION [None]
  - HEPATIC ENCEPHALOPATHY [None]
